FAERS Safety Report 24069191 (Version 2)
Quarter: 2024Q3

REPORT INFORMATION
  Report Type: Report from Study
  Country: US (occurrence: US)
  Receive Date: 20240710
  Receipt Date: 20240710
  Transmission Date: 20241017
  Serious: No
  Sender: ROCHE
  Company Number: US-ROCHE-2874013

PATIENT
  Age: 65 Year
  Sex: Male

DRUGS (4)
  1. ALECENSA [Suspect]
     Active Substance: ALECTINIB HYDROCHLORIDE
     Indication: Bronchial carcinoma
     Dosage: TAKE 4 CAPSULE(S) BY MOUTH TWICE A DAY
     Route: 048
     Dates: start: 20200722
  2. ALECENSA [Suspect]
     Active Substance: ALECTINIB HYDROCHLORIDE
     Indication: Lung neoplasm malignant
     Route: 048
  3. ALECENSA [Suspect]
     Active Substance: ALECTINIB HYDROCHLORIDE
     Indication: Malignant nervous system neoplasm
  4. DEXAMETHASONE [Concomitant]
     Active Substance: DEXAMETHASONE
     Route: 048

REACTIONS (11)
  - Decreased appetite [Unknown]
  - Asthenia [Unknown]
  - Hypoaesthesia [Unknown]
  - Pain [Unknown]
  - Abdominal pain [Unknown]
  - Dyspnoea [Unknown]
  - Fatigue [Unknown]
  - Cough [Unknown]
  - Headache [Unknown]
  - Tachycardia [Unknown]
  - Nausea [Unknown]
